FAERS Safety Report 6159428-4 (Version None)
Quarter: 2009Q2

REPORT INFORMATION
  Report Type: 
  Country: None (occurrence: None)
  Receive Date: 20090417
  Receipt Date: 20090415
  Transmission Date: 20091009
  Serious: Yes (Death, Other)
  Sender: FDA-Public Use
  Company Number: PHHY2009AT11939

PATIENT
  Sex: Female

DRUGS (6)
  1. TASIGNA [Suspect]
     Indication: CHRONIC MYELOID LEUKAEMIA
     Dosage: 800 MG , 2-0-2
     Route: 048
     Dates: start: 20081001
  2. SIMVASTATIN [Suspect]
     Indication: BLOOD CHOLESTEROL INCREASED
     Dosage: 40 MG/DAY
     Dates: start: 20090101
  3. SIMVASTATIN [Suspect]
     Dosage: 80 MG, BID
     Dates: start: 20090201, end: 20090326
  4. OMEPRAZOL [Concomitant]
     Indication: GASTRITIS
     Dosage: 1 X 1
     Dates: start: 20080101, end: 20090327
  5. ENALAPRIL [Concomitant]
     Indication: CARDIAC FAILURE
     Dosage: 10 MG, BID
     Dates: start: 20080101, end: 20090327
  6. MARCUMAR [Concomitant]
     Indication: ATRIAL FIBRILLATION
     Dosage: 1.5 MG, BID
     Dates: start: 20080101, end: 20090327

REACTIONS (11)
  - BLOOD CREATINE PHOSPHOKINASE INCREASED [None]
  - BLOOD CREATININE INCREASED [None]
  - BREAST PAIN [None]
  - CHRONIC MYELOID LEUKAEMIA [None]
  - DEATH [None]
  - INAPPROPRIATE SCHEDULE OF DRUG ADMINISTRATION [None]
  - INFLUENZA [None]
  - INFLUENZA LIKE ILLNESS [None]
  - MYALGIA [None]
  - PYREXIA [None]
  - RHABDOMYOLYSIS [None]
